FAERS Safety Report 8960956 (Version 6)
Quarter: 2013Q3

REPORT INFORMATION
  Report Type: Spontaneous
  Country: US (occurrence: US)
  Receive Date: 20121212
  Receipt Date: 20130708
  Transmission Date: 20140515
  Serious: Yes (Hospitalization, Disabling, Other)
  Sender: FDA-Public Use
  Company Number: US-009507513-1212USA004197

PATIENT
  Sex: Female

DRUGS (9)
  1. FOSAMAX [Suspect]
     Indication: OSTEOPENIA
     Dosage: 70 MG, QW
     Route: 048
     Dates: start: 1998, end: 2008
  2. ALENDRONATE SODIUM [Suspect]
     Dosage: 70 MG, QW
     Dates: start: 2008, end: 20110811
  3. VITAMINS (UNSPECIFIED) [Concomitant]
     Indication: ROUTINE HEALTH MAINTENANCE
  4. FOLIC ACID [Concomitant]
     Indication: ROUTINE HEALTH MAINTENANCE
  5. OMEGA-3 MARINE TRIGLYCERIDES [Concomitant]
     Indication: ROUTINE HEALTH MAINTENANCE
  6. UBIDECARENONE [Concomitant]
     Indication: ROUTINE HEALTH MAINTENANCE
  7. CYCLOBENZAPRINE HYDROCHLORIDE [Concomitant]
     Indication: MUSCLE SPASMS
     Dosage: 10 MG, QD
     Dates: start: 1997
  8. CYCLOBENZAPRINE HYDROCHLORIDE [Concomitant]
     Indication: MUSCLE SPASMS
  9. ZYRTEC [Concomitant]
     Indication: SEASONAL ALLERGY
     Dosage: 10 MG, QD
     Dates: start: 1997

REACTIONS (30)
  - Intramedullary rod insertion [Unknown]
  - Spinal fusion surgery [Unknown]
  - Spinal fusion surgery [Unknown]
  - Knee arthroplasty [Unknown]
  - Intervertebral disc operation [Unknown]
  - Femur fracture [Unknown]
  - Arthralgia [Not Recovered/Not Resolved]
  - Hypercholesterolaemia [Unknown]
  - Rheumatoid arthritis [Unknown]
  - Asthma [Unknown]
  - Arthropathy [Unknown]
  - Ligament sprain [Unknown]
  - Adenoidal disorder [Unknown]
  - Adenoidectomy [Unknown]
  - Epistaxis [Unknown]
  - Cataract [Unknown]
  - Cataract operation [Unknown]
  - Epistaxis [Unknown]
  - Eyelid disorder [Unknown]
  - Eyelid operation [Unknown]
  - Mitral valve incompetence [Unknown]
  - Osteoporosis [Unknown]
  - Atrial fibrillation [Recovered/Resolved]
  - Hypothyroidism [Unknown]
  - Deep vein thrombosis [Unknown]
  - Muscle spasms [Unknown]
  - Drug hypersensitivity [Unknown]
  - Drug hypersensitivity [Unknown]
  - Drug hypersensitivity [Unknown]
  - Gastrooesophageal reflux disease [Unknown]
